FAERS Safety Report 10611268 (Version 1)
Quarter: 2014Q4

REPORT INFORMATION
  Report Type: Spontaneous
  Country: US (occurrence: US)
  Receive Date: 20141126
  Receipt Date: 20141126
  Transmission Date: 20150529
  Serious: Yes (Hospitalization)
  Sender: FDA-Public Use
  Company Number: US-JNJFOC-20141117390

PATIENT
  Age: 63 Year
  Sex: Male

DRUGS (9)
  1. IMDUR [Concomitant]
     Active Substance: ISOSORBIDE MONONITRATE
  2. ALLOPURINOL. [Concomitant]
     Active Substance: ALLOPURINOL
  3. CARVEDILOL. [Concomitant]
     Active Substance: CARVEDILOL
  4. IMBRUVICA [Suspect]
     Active Substance: IBRUTINIB
     Indication: CHRONIC LYMPHOCYTIC LEUKAEMIA
     Route: 048
     Dates: start: 20141106, end: 201411
  5. COMPAZINE [Concomitant]
     Active Substance: PROCHLORPERAZINE MALEATE
  6. CLONIDINE. [Concomitant]
     Active Substance: CLONIDINE
  7. ASPIRIN. [Concomitant]
     Active Substance: ASPIRIN
  8. RITUXAN [Concomitant]
     Active Substance: RITUXIMAB
  9. AMLODIPINE [Concomitant]
     Active Substance: AMLODIPINE BESYLATE

REACTIONS (1)
  - Haematemesis [Recovered/Resolved]

NARRATIVE: CASE EVENT DATE: 201411
